FAERS Safety Report 6602218-6 (Version None)
Quarter: 2010Q1

REPORT INFORMATION
  Report Type: 
  Country: None (occurrence: None)
  Receive Date: 20100218
  Receipt Date: 20100204
  Transmission Date: 20100710
  Serious: Yes (Other)
  Sender: FDA-Public Use
  Company Number: 2010AL000753

PATIENT
  Age: 3 Month
  Sex: Male

DRUGS (2)
  1. METOCLOPRAMIDE [Suspect]
     Indication: GASTROOESOPHAGEAL REFLUX DISEASE
     Dosage: 0.2 MG/KG; Q6H; PO
     Route: 048
  2. LANSOPRAZOLE [Concomitant]

REACTIONS (5)
  - DRUG EFFECT DECREASED [None]
  - GALACTORRHOEA [None]
  - GYNAECOMASTIA [None]
  - LARYNGEAL STENOSIS [None]
  - RESPIRATORY DISTRESS [None]
